FAERS Safety Report 18716629 (Version 1)
Quarter: 2021Q1

REPORT INFORMATION
  Report Type: Spontaneous
  Country: US (occurrence: US)
  Receive Date: 20210107
  Receipt Date: 20210107
  Transmission Date: 20210419
  Serious: Yes (Hospitalization)
  Sender: FDA-Public Use
  Company Number: None

PATIENT
  Age: 60 Year
  Sex: Male
  Weight: 125.64 kg

DRUGS (1)
  1. ALFUZOSIN (ALFUZOSIN HCL 10MG TAB, SA) [Suspect]
     Active Substance: ALFUZOSIN HYDROCHLORIDE
     Indication: BENIGN PROSTATIC HYPERPLASIA
     Route: 048
     Dates: start: 20190827, end: 20190920

REACTIONS (2)
  - Respiratory distress [None]
  - Angioedema [None]

NARRATIVE: CASE EVENT DATE: 20190918
